FAERS Safety Report 11144836 (Version 1)
Quarter: 2015Q2

REPORT INFORMATION
  Report Type: Spontaneous
  Country: US (occurrence: US)
  Receive Date: 20150526
  Receipt Date: 20150526
  Transmission Date: 20150821
  Serious: Yes (Other)
  Sender: FDA-Public Use
  Company Number: US-PFIZER INC-2015174622

PATIENT
  Age: 72 Year
  Sex: Female
  Weight: 56 kg

DRUGS (5)
  1. LIDOCAINE HCL [Suspect]
     Active Substance: LIDOCAINE HYDROCHLORIDE
     Dosage: UNK
  2. AMBIEN [Concomitant]
     Active Substance: ZOLPIDEM TARTRATE
     Indication: SLEEP DISORDER
     Dosage: 10MG (1 CAPSULE) AT NIGHT
     Route: 048
  3. SOTALOL. [Concomitant]
     Active Substance: SOTALOL
     Indication: HEART RATE ABNORMAL
     Dosage: 80MG (1 TABLET) TWICE DAILY
     Route: 048
  4. TIAZAC [Concomitant]
     Active Substance: DILTIAZEM HYDROCHLORIDE
     Indication: BLOOD PRESSURE ABNORMAL
     Dosage: 120 MG (1 CAPSULE) THREE TIMES A DAY
     Route: 048
  5. PREVACID [Concomitant]
     Active Substance: LANSOPRAZOLE
     Indication: GASTROOESOPHAGEAL REFLUX DISEASE
     Dosage: 30 MG (1 CAPSULE) DAILY
     Route: 048

REACTIONS (1)
  - Atrial fibrillation [Unknown]
